FAERS Safety Report 9517328 (Version 1)
Quarter: 2013Q1

REPORT INFORMATION
  Report Type: Spontaneous
  Country: US (occurrence: None)
  Receive Date: 20130305
  Receipt Date: 20130305
  Transmission Date: 20140127
  Serious: Yes (Other)
  Sender: FDA-Public Use
  Company Number: 163-21880-12122083

PATIENT
  Age: 74 Year
  Sex: Female

DRUGS (9)
  1. REVLIMID ( LENALIDOMIDE) ( 25 MILLIGRAM, CAPSULES) [Suspect]
     Indication: PLASMA CELL MYELOMA
     Dosage: 21 IN 21 DAYS
     Route: 048
     Dates: start: 20121207
  2. ARANESP (DARBEPOET IN ALFA) (UNKNOWN) [Concomitant]
  3. ASPIRIN 9ACETYLSALICYLIC ACID) (UNKNOWN) [Concomitant]
  4. CHROMIUM (CHROMIUM) (UNKNOWN) [Concomitant]
  5. COQ-10 (UBIDECARENONE) (UNKNOWN) [Concomitant]
  6. DEXAMETHASONE SOD PHOSPHATE PF (DEXAMETHASONE SODIUM PHOSPHATE) (UNKNOWN) [Concomitant]
  7. DIOVAN HCT (CO-DIOVAN) (UNKNOWN) [Concomitant]
  8. MAGNESIUM (MAGNESIUM) (UNKNOWN) [Concomitant]
  9. NORVASC (AMLODIPINE BESILATE) (UNKNOWN) [Concomitant]

REACTIONS (4)
  - Dermatitis bullous [None]
  - Oedema mucosal [None]
  - Paraesthesia mucosal [None]
  - Vision blurred [None]
